FAERS Safety Report 8830880 (Version 1)
Quarter: 2012Q4

REPORT INFORMATION
  Report Type: 
  Country: US (occurrence: US)
  Receive Date: 20121009
  Receipt Date: 20121009
  Transmission Date: 20130627
  Serious: No
  Sender: FDA-Public Use
  Company Number: US-PFIZER INC-2012247844

PATIENT
  Sex: Female

DRUGS (2)
  1. ADVIL [Suspect]
     Indication: HEADACHE
     Dosage: UNK
     Route: 048
  2. TYLENOL [Suspect]
     Indication: HEADACHE
     Dosage: UNK

REACTIONS (1)
  - Tinnitus [Unknown]
